FAERS Safety Report 8111774 (Version 5)
Quarter: 2014Q1

REPORT INFORMATION
  Report Type: Spontaneous
  Country: US (occurrence: US)
  Receive Date: 20110829
  Receipt Date: 20140320
  Transmission Date: 20141002
  Serious: Yes (Hospitalization, Other)
  Sender: FDA-Public Use
  Company Number: US-ASTRAZENECA-2010SE56950

PATIENT
  Age: 81 Year
  Sex: Female
  Weight: 64.9 kg

DRUGS (16)
  1. SYMBICORT PMDI [Suspect]
     Indication: ASTHMA
     Dosage: 80/4.5 MCG ONE PUFF BID
     Route: 055
  2. SYMBICORT PMDI [Suspect]
     Indication: ASTHMA
     Dosage: 160/4.5 MCG TWO PUFFS BID
     Route: 055
  3. SYMBICORT PMDI [Suspect]
     Indication: ASTHMA
     Dosage: 160/4.5 MCG TWO PUFFS BID
     Route: 055
  4. NEXIUM [Suspect]
     Indication: GASTROOESOPHAGEAL REFLUX DISEASE
     Route: 048
     Dates: start: 2007
  5. NEXIUM [Suspect]
     Indication: GASTROOESOPHAGEAL REFLUX DISEASE
     Dosage: PRN
     Route: 048
  6. RHINOCORT AQUA [Suspect]
     Route: 045
  7. AMITRIPTYLINE [Suspect]
  8. DEXILANT [Suspect]
     Dosage: BID
     Route: 048
  9. DEXILANT [Suspect]
  10. TRAVATAN Z [Suspect]
     Route: 031
  11. VENTOLIN [Concomitant]
     Indication: ASTHMA
     Dosage: PRN
  12. VENTOLIN [Concomitant]
     Indication: INHALATION THERAPY
     Dosage: PRN
  13. VENTOLIN [Concomitant]
     Indication: ASTHMA
     Dosage: DAILY
     Route: 055
     Dates: start: 20140310
  14. VENTOLIN [Concomitant]
     Indication: INHALATION THERAPY
     Dosage: DAILY
     Route: 055
     Dates: start: 20140310
  15. CLONAZEPAM [Concomitant]
     Indication: SLEEP DISORDER
     Dosage: HALF A PILL AT NIGHT
  16. LOVASTATIN [Concomitant]

REACTIONS (25)
  - Dyspnoea [Unknown]
  - Dyskinesia [Unknown]
  - Dyspnoea [Recovering/Resolving]
  - Chest discomfort [Recovering/Resolving]
  - Sinusitis [Unknown]
  - Nasal congestion [Recovering/Resolving]
  - Eye disorder [Unknown]
  - Intraocular pressure increased [Unknown]
  - Ocular hyperaemia [Unknown]
  - Ocular discomfort [Unknown]
  - Eye pain [Unknown]
  - Fatigue [Unknown]
  - Gastritis [Unknown]
  - Weight decreased [Recovered/Resolved]
  - Gait disturbance [Unknown]
  - Oropharyngeal pain [Unknown]
  - Dysphonia [Unknown]
  - Diarrhoea [Recovered/Resolved]
  - Malaise [Unknown]
  - Abdominal discomfort [Unknown]
  - Insomnia [Unknown]
  - Intentional drug misuse [Unknown]
  - Drug ineffective [Unknown]
  - Off label use [Unknown]
  - Intentional drug misuse [Unknown]
